FAERS Safety Report 6267774-9 (Version None)
Quarter: 2009Q3

REPORT INFORMATION
  Report Type: 
  Country: None (occurrence: None)
  Receive Date: 20090714
  Receipt Date: 20090629
  Transmission Date: 20100115
  Serious: Yes (Other)
  Sender: FDA-Public Use
  Company Number: US-JNJFOC-20090704008

PATIENT
  Age: 15 Year
  Sex: Female

DRUGS (1)
  1. TYLENOL SINUS CONGESTION + PAIN DAYTIME COOL BURST CAPLET [Suspect]
     Indication: HEADACHE
     Dosage: 12 TO 15 CAPLETS

REACTIONS (1)
  - INTENTIONAL OVERDOSE [None]
